FAERS Safety Report 15496709 (Version 2)
Quarter: 2018Q4

REPORT INFORMATION
  Report Type: Spontaneous
  Country: US (occurrence: US)
  Receive Date: 20181014
  Receipt Date: 20181018
  Transmission Date: 20190205
  Serious: No
  Sender: FDA-Public Use
  Company Number: US-009507513-1809USA010736

PATIENT
  Sex: Female

DRUGS (2)
  1. ANORO ELLIPTA [Concomitant]
     Active Substance: UMECLIDINIUM BROMIDE\VILANTEROL TRIFENATATE
     Dosage: UNK
     Dates: start: 2018, end: 2018
  2. ASMANEX [Suspect]
     Active Substance: MOMETASONE FUROATE
     Dosage: UNK
     Dates: start: 20180921

REACTIONS (4)
  - Dyspnoea [Unknown]
  - Incorrect dose administered [Unknown]
  - Product quality issue [Unknown]
  - Wheezing [Unknown]

NARRATIVE: CASE EVENT DATE: 2018
